FAERS Safety Report 24041569 (Version 6)
Quarter: 2024Q3

REPORT INFORMATION
  Report Type: Report from Study
  Country: US (occurrence: US)
  Receive Date: 20240702
  Receipt Date: 20240828
  Transmission Date: 20241016
  Serious: No
  Sender: ALEXION PHARMACEUTICALS
  Company Number: US-AstraZeneca-CH-00653403A

PATIENT
  Age: 30 Year
  Sex: Female
  Weight: 65.76 kg

DRUGS (1)
  1. STRENSIQ [Suspect]
     Active Substance: ASFOTASE ALFA
     Indication: Hypophosphatasia
     Dosage: 71 MILLIGRAM, SIX TIMES/WEEK
     Route: 058
     Dates: start: 20240617

REACTIONS (7)
  - Fatigue [Unknown]
  - Myalgia [Not Recovered/Not Resolved]
  - Injection site pain [Recovering/Resolving]
  - Injection site erythema [Recovering/Resolving]
  - Injection site inflammation [Recovering/Resolving]
  - Injection site pruritus [Recovering/Resolving]
  - Injection site swelling [Recovering/Resolving]

NARRATIVE: CASE EVENT DATE: 20240617
